FAERS Safety Report 25206610 (Version 2)
Quarter: 2025Q3

REPORT INFORMATION
  Report Type: Spontaneous
  Country: EU (occurrence: EU)
  Receive Date: 20250417
  Receipt Date: 20250809
  Transmission Date: 20251020
  Serious: Yes (Other)
  Sender: ALEXION PHARMACEUTICALS
  Company Number: None

PATIENT
  Age: 32 Year
  Sex: Female
  Weight: 63 kg

DRUGS (1)
  1. LYNPARZA [Suspect]
     Active Substance: OLAPARIB
     Indication: Glioma
     Dates: start: 20241209, end: 20250214

REACTIONS (3)
  - Polyarteritis nodosa [Recovering/Resolving]
  - Thrombocytopenia [Unknown]
  - Normocytic anaemia [Unknown]

NARRATIVE: CASE EVENT DATE: 20241216
